FAERS Safety Report 11434043 (Version 2)
Quarter: 2015Q4

REPORT INFORMATION
  Report Type: Spontaneous
  Country: IT (occurrence: IT)
  Receive Date: 20150831
  Receipt Date: 20151117
  Transmission Date: 20160304
  Serious: Yes (Other)
  Sender: FDA-Public Use
  Company Number: IT-PFIZER INC-2015285964

PATIENT
  Age: 45 Year
  Sex: Female

DRUGS (2)
  1. TORVAST [Concomitant]
     Active Substance: ATORVASTATIN
     Dosage: 20 MG, UNK
     Route: 048
  2. LYRICA [Suspect]
     Active Substance: PREGABALIN
     Indication: ARTHRALGIA
     Dosage: 25 MG, DAILY
     Route: 048
     Dates: start: 20150818, end: 20150818

REACTIONS (6)
  - Product use issue [Unknown]
  - Vertigo [Recovering/Resolving]
  - Headache [Recovering/Resolving]
  - Restlessness [Recovering/Resolving]
  - Tremor [Recovering/Resolving]
  - Balance disorder [Recovering/Resolving]

NARRATIVE: CASE EVENT DATE: 20150818
